FAERS Safety Report 5140924-3 (Version None)
Quarter: 2006Q4

REPORT INFORMATION
  Report Type: 
  Country: None (occurrence: None)
  Receive Date: 20060914
  Receipt Date: 20051219
  Transmission Date: 20070319
  Serious: Yes (Hospitalization)
  Sender: FDA-Public Use
  Company Number: PHEH2005US12425

PATIENT
  Age: 70 Year
  Sex: Female

DRUGS (6)
  1. DIOVAN [Suspect]
     Indication: HYPERTENSION
     Dosage: SEE IMAGE
     Route: 048
     Dates: start: 19980101, end: 20050901
  2. DIOVAN [Suspect]
     Indication: HYPERTENSION
     Dosage: SEE IMAGE
     Route: 048
     Dates: start: 20050901
  3. LOPRESSOR [Concomitant]
  4. EFFEXOR [Concomitant]
  5. ZOCOR [Concomitant]
  6. PREMARIN [Concomitant]

REACTIONS (1)
  - BLOOD PRESSURE INCREASED [None]
